FAERS Safety Report 7649667-5 (Version None)
Quarter: 2011Q3

REPORT INFORMATION
  Report Type: 
  Country: None (occurrence: None)
  Receive Date: 20110802
  Receipt Date: 20110728
  Transmission Date: 20111222
  Serious: No
  Sender: FDA-Public Use
  Company Number: US-PFIZER INC-2011117512

PATIENT
  Sex: Female

DRUGS (4)
  1. TRAZODONE HCL [Suspect]
     Indication: DEPRESSION
     Dosage: 75 MG, 2X/DAY
     Route: 048
     Dates: start: 20070421
  2. TRAZODONE HCL [Suspect]
     Dosage: 20 MG, 2X/DAY
  3. VALTREX [Concomitant]
     Dosage: 500 MG, 1X/DAY
  4. PRISTIQ [Concomitant]
     Dosage: 50 MG, 1X/DAY

REACTIONS (8)
  - DYSPEPSIA [None]
  - IRRITABILITY [None]
  - ABNORMAL DREAMS [None]
  - DIZZINESS [None]
  - ANGER [None]
  - HEADACHE [None]
  - AGGRESSION [None]
  - ANXIETY [None]
